FAERS Safety Report 16376049 (Version 1)
Quarter: 2019Q2

REPORT INFORMATION
  Report Type: Spontaneous
  Country: FR (occurrence: FR)
  Receive Date: 20190531
  Receipt Date: 20190531
  Transmission Date: 20190711
  Serious: Yes (Other)
  Sender: FDA-Public Use
  Company Number: FR-ACCORD-130191

PATIENT
  Age: 68 Year
  Sex: Female
  Weight: 57 kg

DRUGS (15)
  1. PREDNISOLONE. [Concomitant]
     Active Substance: PREDNISOLONE
  2. CARBOPLATIN ACCORD [Suspect]
     Active Substance: CARBOPLATIN
     Indication: OVARIAN CANCER
     Route: 042
     Dates: start: 20181218, end: 20181218
  3. METHYLPREDNISOLONE. [Suspect]
     Active Substance: METHYLPREDNISOLONE
     Indication: PREMEDICATION
     Route: 042
     Dates: start: 20181218, end: 20181218
  4. POLARAMINE [Suspect]
     Active Substance: DEXCHLORPHENIRAMINE MALEATE
     Indication: PREMEDICATION
     Route: 042
     Dates: start: 20181218, end: 20181218
  5. BRINTELLIX [Concomitant]
     Active Substance: VORTIOXETINE HYDROBROMIDE
  6. PREGABALIN. [Concomitant]
     Active Substance: PREGABALIN
  7. RANITIDINE EG [Suspect]
     Active Substance: RANITIDINE HYDROCHLORIDE
     Indication: PREMEDICATION
     Route: 048
     Dates: start: 20181218, end: 20181218
  8. PANTOPRAZOLE [Concomitant]
     Active Substance: PANTOPRAZOLE
  9. LYSANXIA [Concomitant]
     Active Substance: PRAZEPAM
  10. HAVLANE [Concomitant]
     Active Substance: LOPRAZOLAM
  11. LYSANXIA [Concomitant]
     Active Substance: PRAZEPAM
  12. PACLITAXEL ACCORD [Suspect]
     Active Substance: PACLITAXEL
     Indication: OVARIAN CANCER
     Route: 042
     Dates: start: 20181218, end: 20181218
  13. TERCIAN [Concomitant]
     Active Substance: CYAMEMAZINE
  14. INNOHEP [Concomitant]
     Active Substance: TINZAPARIN SODIUM
  15. ONDANSETRON ACCORD [Suspect]
     Active Substance: ONDANSETRON
     Indication: PREMEDICATION
     Route: 042
     Dates: start: 20181218, end: 20181218

REACTIONS (4)
  - Dyspnoea [Recovered/Resolved]
  - Erythema [Recovered/Resolved]
  - Oxygen saturation decreased [Recovered/Resolved]
  - Chills [Recovered/Resolved]

NARRATIVE: CASE EVENT DATE: 20181218
